FAERS Safety Report 21407865 (Version 1)
Quarter: 2022Q4

REPORT INFORMATION
  Report Type: Report from Study
  Country: DE (occurrence: DE)
  Receive Date: 20221004
  Receipt Date: 20221004
  Transmission Date: 20230113
  Serious: Yes (Hospitalization, Other)
  Sender: FDA-Public Use
  Company Number: None

PATIENT
  Sex: Female

DRUGS (9)
  1. METHOTREXATE [Suspect]
     Active Substance: METHOTREXATE
     Indication: Rheumatoid arthritis
     Dosage: 7.5 MILLIGRAM, THERAPY END DATE : ASKU
     Dates: start: 20170710
  2. METHOTREXATE [Suspect]
     Active Substance: METHOTREXATE
     Dosage: 5 MILLIGRAM, THERAPY END DATE : ASKU
     Dates: start: 20160304
  3. METHOTREXATE [Suspect]
     Active Substance: METHOTREXATE
     Dosage: 7.5 MILLIGRAM, THERAPY END DATE : ASKU
     Dates: start: 20180117
  4. METHOTREXATE [Suspect]
     Active Substance: METHOTREXATE
     Dosage: 5 MILLIGRAM, THERAPY END DATE : ASKU
     Dates: start: 20160111
  5. METHOTREXATE [Suspect]
     Active Substance: METHOTREXATE
     Dosage: 5 MILLIGRAM, THERAPY END DATE : ASKU
     Dates: start: 20160708
  6. METHOTREXATE [Suspect]
     Active Substance: METHOTREXATE
     Dosage: 7.5 MILLIGRAM, THERAPY END DATE : ASKU
     Dates: start: 20170120
  7. RINVOQ [Suspect]
     Active Substance: UPADACITINIB
     Indication: Rheumatoid arthritis
     Dosage: 15 MILLIGRAM, THERAPY END DATE : ASKU
  8. SIMPONI [Suspect]
     Active Substance: GOLIMUMAB
     Indication: Rheumatoid arthritis
     Dosage: 50 MILLIGRAM, DURATION :2 MONTHS
     Dates: start: 201601, end: 201603
  9. ETANERCEPT [Suspect]
     Active Substance: ETANERCEPT
     Indication: Rheumatoid arthritis
     Dosage: 50 MILLIGRAM, DURATION : 6 MONTHS
     Dates: start: 201810, end: 201904

REACTIONS (12)
  - Intervertebral disc protrusion [Recovered/Resolved]
  - Cataract [Unknown]
  - Pelvic floor muscle weakness [Not Recovered/Not Resolved]
  - Basal cell carcinoma [Unknown]
  - Urinary tract infection [Unknown]
  - Alopecia [Unknown]
  - Hypertension [Unknown]
  - Intervertebral disc protrusion [Unknown]
  - Anal incontinence [Unknown]
  - Gastrointestinal infection [Unknown]
  - Nausea [Unknown]
  - Bronchitis [Recovered/Resolved]

NARRATIVE: CASE EVENT DATE: 20170207
